FAERS Safety Report 7515275-X (Version None)
Quarter: 2011Q2

REPORT INFORMATION
  Report Type: 
  Country: None (occurrence: None)
  Receive Date: 20110601
  Receipt Date: 20100603
  Transmission Date: 20111010
  Serious: Yes (Life-Threatening, Hospitalization)
  Sender: FDA-Public Use
  Company Number: US-PFIZER INC-2010070125

PATIENT
  Sex: Female
  Weight: 75 kg

DRUGS (4)
  1. CRESTOR [Concomitant]
     Dosage: 20 MG, DAILY
     Route: 048
  2. LEXAPRO [Concomitant]
     Indication: DEPRESSION
     Dosage: 20 MG, DAILY
     Route: 048
  3. CHANTIX [Suspect]
     Indication: SMOKING CESSATION THERAPY
     Dosage: 0.5 MG, ONCE DAILY
     Route: 048
     Dates: start: 20070514, end: 20070501
  4. PLAVIX [Concomitant]
     Indication: CARDIAC DISORDER
     Dosage: 75 MG, DAILY
     Route: 048

REACTIONS (1)
  - SUICIDE ATTEMPT [None]
